FAERS Safety Report 8619255-2 (Version None)
Quarter: 2012Q3

REPORT INFORMATION
  Report Type: 
  Country: None (occurrence: None)
  Receive Date: 20120810
  Receipt Date: 20120725
  Transmission Date: 20120928
  Serious: Yes (Hospitalization, Other)
  Sender: FDA-Public Use
  Company Number: 2012MA009246

PATIENT
  Age: 1 Year
  Sex: Male

DRUGS (1)
  1. FEVERALL [Suspect]
     Dosage: 10 GM;X1;PO
     Route: 048

REACTIONS (24)
  - PULSE ABNORMAL [None]
  - LIVEDO RETICULARIS [None]
  - BLOOD PH DECREASED [None]
  - HAEMODIALYSIS [None]
  - HEART RATE INCREASED [None]
  - BODY TEMPERATURE DECREASED [None]
  - ELECTROCARDIOGRAM QT SHORTENED [None]
  - HEPATOMEGALY [None]
  - ALANINE AMINOTRANSFERASE INCREASED [None]
  - UNRESPONSIVE TO STIMULI [None]
  - PROTHROMBIN TIME PROLONGED [None]
  - ACTIVATED PARTIAL THROMBOPLASTIN TIME PROLONGED [None]
  - ABDOMINAL PAIN UPPER [None]
  - DEPRESSED LEVEL OF CONSCIOUSNESS [None]
  - HYPOPNOEA [None]
  - BLOOD BILIRUBIN INCREASED [None]
  - ASPARTATE AMINOTRANSFERASE INCREASED [None]
  - JAUNDICE [None]
  - POISONING [None]
  - APNOEA [None]
  - ELECTROCARDIOGRAM T WAVE ABNORMAL [None]
  - RESPIRATORY DISORDER [None]
  - BLOOD PRESSURE DECREASED [None]
  - INCORRECT DOSE ADMINISTERED [None]
